FAERS Safety Report 15489015 (Version 1)
Quarter: 2018Q4

REPORT INFORMATION
  Report Type: Spontaneous
  Country: US (occurrence: US)
  Receive Date: 20181004
  Receipt Date: 20181004
  Transmission Date: 20190205
  Serious: No
  Sender: FDA-Public Use
  Company Number: None

PATIENT
  Sex: Female

DRUGS (1)
  1. TRUVADA [Suspect]
     Active Substance: EMTRICITABINE\TENOFOVIR DISOPROXIL FUMARATE
     Indication: SEXUAL TRANSMISSION OF INFECTION
     Dosage: ?          OTHER DOSE:200/300 MG;?
     Route: 048
     Dates: start: 20161219

REACTIONS (1)
  - Memory impairment [None]
